FAERS Safety Report 4356254-3 (Version None)
Quarter: 2004Q2

REPORT INFORMATION
  Report Type: 
  Country: None (occurrence: None)
  Receive Date: 20040511
  Receipt Date: 20040427
  Transmission Date: 20050107
  Serious: Yes (Hospitalization)
  Sender: FDA-Public Use
  Company Number: JP-SHR-04-024595

PATIENT
  Age: 58 Year
  Sex: Female

DRUGS (1)
  1. PROSCOPE 300 (IOPROMIDE) N/A [Suspect]
     Indication: COMPUTERISED TOMOGRAM
     Dosage: 100 ML, INTRAVENOUS
     Route: 042
     Dates: start: 20040406, end: 20040406

REACTIONS (3)
  - BLOOD PRESSURE DECREASED [None]
  - MALAISE [None]
  - SHOCK [None]
